FAERS Safety Report 19908969 (Version 1)
Quarter: 2021Q4

REPORT INFORMATION
  Report Type: Spontaneous
  Country: US (occurrence: US)
  Receive Date: 20211001
  Receipt Date: 20211001
  Transmission Date: 20220303
  Serious: No
  Sender: FDA-Public Use
  Company Number: US-AMARIN PHARMA, INC.-2020AMR000720

PATIENT
  Age: 64 Year
  Sex: Male
  Weight: 108.96 kg

DRUGS (3)
  1. VASCEPA [Suspect]
     Active Substance: ICOSAPENT ETHYL
     Indication: Cardiovascular disorder
     Route: 048
     Dates: start: 20200918, end: 20201011
  2. VASCEPA [Suspect]
     Active Substance: ICOSAPENT ETHYL
     Indication: Renal disorder
  3. LASIX [Concomitant]
     Active Substance: FUROSEMIDE
     Indication: Fluid retention
     Route: 048
     Dates: start: 2005

REACTIONS (4)
  - Glucose tolerance impaired [Unknown]
  - Oedema peripheral [Recovered/Resolved]
  - Therapeutic response unexpected [Unknown]
  - Prescribed underdose [Recovered/Resolved]

NARRATIVE: CASE EVENT DATE: 20200918
